FAERS Safety Report 9153341 (Version 1)
Quarter: 2013Q1

REPORT INFORMATION
  Report Type: Spontaneous
  Country: DK (occurrence: None)
  Receive Date: 20130204
  Receipt Date: 20130204
  Transmission Date: 20140127
  Serious: Yes (Hospitalization)
  Sender: FDA-Public Use
  Company Number: 2013MA00805

PATIENT
  Sex: Female

DRUGS (1)
  1. DONEPEZIL HYDROCHLORIDE [Suspect]
     Route: 048
     Dates: start: 20121219, end: 20130111

REACTIONS (4)
  - Insomnia [None]
  - Elevated mood [None]
  - Mania [None]
  - Overconfidence [None]
